FAERS Safety Report 23178941 (Version 1)
Quarter: 2023Q4

REPORT INFORMATION
  Report Type: Spontaneous
  Country: FR (occurrence: FR)
  Receive Date: 20231113
  Receipt Date: 20231113
  Transmission Date: 20240109
  Serious: Yes (Life-Threatening, Hospitalization, Other)
  Sender: FDA-Public Use
  Company Number: FR-PFIZER INC-PV202300173972

PATIENT
  Age: 69 Year
  Sex: Female
  Weight: 132 kg

DRUGS (10)
  1. BOSULIF [Suspect]
     Active Substance: BOSUTINIB MONOHYDRATE
     Indication: Chronic myeloid leukaemia
     Dosage: 1 DF, 1X/DAY
     Route: 048
     Dates: start: 20221229, end: 202305
  2. XARELTO [Concomitant]
     Active Substance: RIVAROXABAN
     Dosage: 1 DF, SINGLE IN THE EVENING
  3. BISOPROLOL [Concomitant]
     Active Substance: BISOPROLOL\BISOPROLOL FUMARATE
     Dosage: 1 DF, 2X/DAY MORNING AND EVENING
  4. SPIRONOLACTONE [Concomitant]
     Active Substance: SPIRONOLACTONE
     Dosage: 1 DF, 1X/DAY MORNING
  5. ENTRESTO [Concomitant]
     Active Substance: SACUBITRIL\VALSARTAN
     Dosage: 1 DF, 2X/DAY MORNING AND EVENING
  6. DAPAGLIFLOZIN [Concomitant]
     Active Substance: DAPAGLIFLOZIN
     Dosage: 1 DF, 1X/DAY MORNING
  7. FUROSEMIDE [Concomitant]
     Active Substance: FUROSEMIDE
     Dosage: 125 MG (1/4 TABLET), 1X/DAY MORNING
  8. FUROSEMIDE [Concomitant]
     Active Substance: FUROSEMIDE
     Dosage: 1 DF, 1X/DAY EVENING
  9. METFORMIN HYDROCHLORIDE [Concomitant]
     Active Substance: METFORMIN HYDROCHLORIDE
     Dosage: 1 DF, 3X/DAY MORNING NOON AND EVENING
  10. SERETIDE [Concomitant]
     Active Substance: FLUTICASONE PROPIONATE\SALMETEROL XINAFOATE
     Dosage: 1 PUFF MORNING AND EVENING

REACTIONS (4)
  - Pulmonary arterial hypertension [Recovering/Resolving]
  - Cardiac disorder [Recovering/Resolving]
  - Cardiac failure [Recovering/Resolving]
  - Atrial fibrillation [Recovering/Resolving]

NARRATIVE: CASE EVENT DATE: 20230501
